FAERS Safety Report 17915500 (Version 1)
Quarter: 2020Q2

REPORT INFORMATION
  Report Type: Spontaneous
  Country: PT (occurrence: PT)
  Receive Date: 20200619
  Receipt Date: 20200619
  Transmission Date: 20200714
  Serious: Yes (Other)
  Sender: FDA-Public Use
  Company Number: PT-TEVA-2020-PT-1788204

PATIENT
  Age: 74 Year
  Sex: Female
  Weight: 85.7 kg

DRUGS (8)
  1. HYDROXYCHLOROQUINE [Suspect]
     Active Substance: HYDROXYCHLOROQUINE
     Indication: COVID-19 PNEUMONIA
     Dosage: 200MG DE 12/12H. 400 MG
     Route: 048
     Dates: start: 20200327, end: 20200403
  2. MORPHINE [Concomitant]
     Active Substance: MORPHINE
  3. PROPOFOL. [Concomitant]
     Active Substance: PROPOFOL
     Route: 042
  4. ENOXAPARIN SODIUM. [Concomitant]
     Active Substance: ENOXAPARIN SODIUM
  5. ROCURONIUM BROMIDE. [Concomitant]
     Active Substance: ROCURONIUM BROMIDE
     Route: 042
  6. CLARITHROMYCIN. [Concomitant]
     Active Substance: CLARITHROMYCIN
  7. LOPINAVIR + RITONAVIR [Concomitant]
     Active Substance: LOPINAVIR\RITONAVIR
     Route: 048
  8. NOREPINEPHRINE. [Concomitant]
     Active Substance: NOREPINEPHRINE
     Route: 042

REACTIONS (2)
  - Hepatic function abnormal [Recovered/Resolved]
  - COVID-19 treatment [Recovered/Resolved]

NARRATIVE: CASE EVENT DATE: 20200327
